FAERS Safety Report 8107744-9 (Version None)
Quarter: 2012Q1

REPORT INFORMATION
  Report Type: 
  Country: None (occurrence: None)
  Receive Date: 20120202
  Receipt Date: 20111215
  Transmission Date: 20120608
  Serious: No
  Sender: FDA-Public Use
  Company Number: CA-JNJFOC-20120111433

PATIENT
  Sex: Female
  Weight: 67 kg

DRUGS (3)
  1. COUMADIN [Concomitant]
  2. ASACOL [Concomitant]
  3. REMICADE [Suspect]
     Indication: COLITIS ULCERATIVE
     Dosage: EVERY 6-8 WEEKS
     Route: 042
     Dates: start: 20111101, end: 20111101

REACTIONS (1)
  - HERPES ZOSTER [None]
